FAERS Safety Report 7599155-X (Version None)
Quarter: 2011Q3

REPORT INFORMATION
  Report Type: 
  Country: None (occurrence: None)
  Receive Date: 20110711
  Receipt Date: 20110624
  Transmission Date: 20111222
  Serious: Yes (Hospitalization, Other)
  Sender: FDA-Public Use
  Company Number: US-BAYER-201039511NA

PATIENT
  Age: 32 Year
  Sex: Female
  Weight: 109 kg

DRUGS (4)
  1. ETHINYLESTRADIOL W/NORGESTIMATE [Concomitant]
     Dosage: UNK
     Dates: start: 20090927
  2. MUCINEX [Concomitant]
  3. YAZ [Suspect]
     Indication: MENORRHAGIA
     Route: 048
     Dates: start: 20081201, end: 20090901
  4. FLEXERIL [Concomitant]

REACTIONS (8)
  - BACK PAIN [None]
  - CHEST PAIN [None]
  - DYSPNOEA [None]
  - DEEP VEIN THROMBOSIS [None]
  - DYSPNOEA EXERTIONAL [None]
  - PAIN IN EXTREMITY [None]
  - PULMONARY EMBOLISM [None]
  - THROMBOSIS [None]
